FAERS Safety Report 5568940-8 (Version None)
Quarter: 2007Q4

REPORT INFORMATION
  Report Type: 
  Country: None (occurrence: None)
  Receive Date: 20071220
  Receipt Date: 20070416
  Transmission Date: 20080405
  Serious: No
  Sender: FDA-Public Use
  Company Number: A0645031A

PATIENT
  Age: 74 Year
  Sex: Male

DRUGS (8)
  1. AVODART [Suspect]
     Dosage: 1CAPL PER DAY
     Route: 048
     Dates: start: 20070201, end: 20070327
  2. ALPHAGAN [Suspect]
     Indication: GLAUCOMA
  3. ZOCOR [Suspect]
  4. CELEBREX [Concomitant]
  5. CALCITRIOL [Concomitant]
  6. NIASPAN [Concomitant]
  7. ASPIRIN [Concomitant]
  8. OMACOR [Concomitant]

REACTIONS (3)
  - DRY MOUTH [None]
  - FATIGUE [None]
  - MYALGIA [None]
